FAERS Safety Report 22226606 (Version 1)
Quarter: 2023Q2

REPORT INFORMATION
  Report Type: Other
  Country: DE (occurrence: DE)
  Receive Date: 20230419
  Receipt Date: 20230419
  Transmission Date: 20230722
  Serious: Yes (Life-Threatening, Hospitalization, Other)
  Sender: FDA-Public Use
  Company Number: DE-CELLTRION INC.-2023DE007850

PATIENT

DRUGS (7)
  1. INFLIXIMAB [Suspect]
     Active Substance: INFLIXIMAB
     Indication: Tubulointerstitial nephritis
     Dosage: 5 MG/KG BODY WEIGHT
     Dates: start: 20230406, end: 20230406
  2. INFLIXIMAB [Suspect]
     Active Substance: INFLIXIMAB
     Dosage: 5 MG/KG BODY WEIGHT
     Dates: start: 20230324, end: 20230324
  3. PACLITAXEL [Suspect]
     Active Substance: PACLITAXEL
     Indication: Triple negative breast cancer
     Dosage: UNK
     Dates: start: 20221202, end: 20230110
  4. CARBOPLATIN [Suspect]
     Active Substance: CARBOPLATIN
     Indication: Triple negative breast cancer
     Dosage: UNK
     Dates: start: 20221202, end: 20230110
  5. KEYTRUDA [Suspect]
     Active Substance: PEMBROLIZUMAB
     Indication: Triple negative breast cancer
     Dosage: 200 MILLIGRAM, Q25D
     Route: 042
     Dates: start: 20221202, end: 20221227
  6. LEVOTHYROXINE SODIUM [Concomitant]
     Active Substance: LEVOTHYROXINE SODIUM
     Indication: Autoimmune thyroiditis
     Dosage: 75 MICROGRAM, ONCE DAILY (QD)
  7. PANTOPRAZOLE [Concomitant]
     Active Substance: PANTOPRAZOLE
     Indication: Gastric perforation
     Dosage: 80MG QD / 40 MILLIGRAM, TWICE DAILY (BID),HIGH-DOSE PPI THERAPY
     Route: 048
     Dates: start: 20230322

REACTIONS (8)
  - Tubulointerstitial nephritis [Recovering/Resolving]
  - Renal impairment [Not Recovered/Not Resolved]
  - Autoimmune thyroiditis [Unknown]
  - Renal failure [Not Recovered/Not Resolved]
  - Gastric perforation [Unknown]
  - Inappropriate schedule of product administration [Unknown]
  - Product use in unapproved indication [Unknown]
  - Off label use [Unknown]

NARRATIVE: CASE EVENT DATE: 20221201
